FAERS Safety Report 16664465 (Version 1)
Quarter: 2019Q3

REPORT INFORMATION
  Report Type: Spontaneous
  Country: AU (occurrence: AU)
  Receive Date: 20190802
  Receipt Date: 20190802
  Transmission Date: 20191004
  Serious: Yes (Other)
  Sender: FDA-Public Use
  Company Number: AU-ALLERGAN-1931477US

PATIENT
  Sex: Female

DRUGS (1)
  1. ACULAR [Suspect]
     Active Substance: KETOROLAC TROMETHAMINE
     Indication: PRODUCT USED FOR UNKNOWN INDICATION
     Dosage: UNK
     Route: 047
     Dates: start: 20190612

REACTIONS (9)
  - Heart rate increased [Unknown]
  - Initial insomnia [Unknown]
  - Dizziness [Unknown]
  - Balance disorder [Unknown]
  - Gait disturbance [Unknown]
  - Blood pressure increased [Unknown]
  - Fatigue [Recovered/Resolved]
  - Inappropriate schedule of product administration [Unknown]
  - Eye irritation [Recovered/Resolved]

NARRATIVE: CASE EVENT DATE: 20190614
